FAERS Safety Report 5205644-5 (Version None)
Quarter: 2007Q1

REPORT INFORMATION
  Report Type: 
  Country: None (occurrence: None)
  Receive Date: 20070105
  Receipt Date: 20070105
  Transmission Date: 20070707
  Serious: No
  Sender: FDA-Public Use
  Company Number: None

PATIENT
  Age: 40 Year
  Sex: Female

DRUGS (11)
  1. HEPARIN [Suspect]
     Indication: THROMBOSIS PROPHYLAXIS
     Dosage: SEE IMAGE
     Dates: start: 20060712, end: 20060713
  2. HEPARIN [Suspect]
     Indication: THROMBOSIS PROPHYLAXIS
     Dosage: SEE IMAGE
     Dates: start: 20060713, end: 20060714
  3. HEPARIN [Suspect]
     Indication: THROMBOSIS PROPHYLAXIS
     Dosage: SEE IMAGE
     Dates: start: 20060714, end: 20060715
  4. HEPARIN [Suspect]
     Indication: THROMBOSIS PROPHYLAXIS
     Dosage: SEE IMAGE
     Dates: start: 20060712
  5. DIPHENHYDRAMINE HCL [Concomitant]
  6. DOCUSATE SODIUM [Concomitant]
  7. HYDROMORPHONE HCL [Concomitant]
  8. LANSOPRAZOLE [Concomitant]
  9. MESALAMINE [Concomitant]
  10. MORPHINE [Concomitant]
  11. MERCAPTOPURINE [Concomitant]

REACTIONS (4)
  - ACTIVATED PARTIAL THROMBOPLASTIN TIME PROLONGED [None]
  - CONDITION AGGRAVATED [None]
  - CROHN'S DISEASE [None]
  - RECTAL HAEMORRHAGE [None]
